FAERS Safety Report 7786375-4 (Version None)
Quarter: 2011Q3

REPORT INFORMATION
  Report Type: 
  Country: None (occurrence: None)
  Receive Date: 20110927
  Receipt Date: 20110912
  Transmission Date: 20111222
  Serious: Yes (Life-Threatening)
  Sender: FDA-Public Use
  Company Number: 1048315

PATIENT
  Age: 74 Year
  Sex: Female

DRUGS (4)
  1. NITROGLYCERIN [Concomitant]
  2. DEXMEDETOMIDINE HYDROCHLORIDE [Suspect]
     Indication: PRODUCT USED FOR UNKNOWN INDICATION
  3. DEXTROSE [Concomitant]
  4. (ACETATE RINGERS) [Concomitant]

REACTIONS (3)
  - ATRIOVENTRICULAR BLOCK SECOND DEGREE [None]
  - CONDITION AGGRAVATED [None]
  - CARDIAC DISORDER [None]
